FAERS Safety Report 23685020 (Version 2)
Quarter: 2024Q2

REPORT INFORMATION
  Report Type: Report from Study
  Country: US (occurrence: US)
  Receive Date: 20240328
  Receipt Date: 20240503
  Transmission Date: 20240716
  Serious: Yes (Death, Other)
  Sender: FDA-Public Use
  Company Number: US-TAKEDA-2024TUS012671

PATIENT
  Age: 61 Year
  Sex: Female
  Weight: 106.1 kg

DRUGS (1)
  1. FRUQUINTINIB [Suspect]
     Active Substance: FRUQUINTINIB
     Indication: Small intestine carcinoma
     Dosage: 5 MILLIGRAM
     Route: 048
     Dates: start: 20231229

REACTIONS (2)
  - Death [Fatal]
  - Abdominal pain upper [Unknown]

NARRATIVE: CASE EVENT DATE: 20240403
